FAERS Safety Report 17265556 (Version 1)
Quarter: 2020Q1

REPORT INFORMATION
  Report Type: Spontaneous
  Country: US (occurrence: US)
  Receive Date: 20200114
  Receipt Date: 20200114
  Transmission Date: 20200409
  Serious: Yes (Other)
  Sender: FDA-Public Use
  Company Number: US-SA-2020SA008881

PATIENT
  Sex: Female

DRUGS (1)
  1. PRALUENT [Suspect]
     Active Substance: ALIROCUMAB
     Indication: ARTHRALGIA
     Dosage: 75 MG, QOW
     Route: 058
     Dates: start: 20160726

REACTIONS (1)
  - Chest injury [Not Recovered/Not Resolved]
